FAERS Safety Report 20342847 (Version 1)
Quarter: 2022Q1

REPORT INFORMATION
  Report Type: Spontaneous
  Country: EG (occurrence: EG)
  Receive Date: 20220117
  Receipt Date: 20220117
  Transmission Date: 20220424
  Serious: Yes (Death, Hospitalization)
  Sender: FDA-Public Use
  Company Number: EG-NOVARTISPH-NVSC2022EG007600

PATIENT
  Sex: Female

DRUGS (1)
  1. COSENTYX [Suspect]
     Active Substance: SECUKINUMAB
     Indication: Product used for unknown indication
     Dosage: 300 MG, QMO (TWO PREFILLED PENS OF COSENTYX 150MG PEN)
     Route: 058
     Dates: start: 202110

REACTIONS (3)
  - COVID-19 [Fatal]
  - Oxygen saturation decreased [Fatal]
  - Decreased immune responsiveness [Fatal]

NARRATIVE: CASE EVENT DATE: 20211218
